FAERS Safety Report 7047215-4 (Version None)
Quarter: 2010Q4

REPORT INFORMATION
  Report Type: 
  Country: None (occurrence: None)
  Receive Date: 20101015
  Receipt Date: 20101013
  Transmission Date: 20110411
  Serious: Yes (Death, Hospitalization, Other)
  Sender: FDA-Public Use
  Company Number: US-ROCHE-695183

PATIENT
  Age: 61 Year
  Sex: Male
  Weight: 57.7 kg

DRUGS (3)
  1. BEVACIZUMAB [Suspect]
     Indication: RECTAL CANCER
     Dosage: LAST DOSE PRIOR TO SAE: 03 FEBRUARY 2010. CYCLE 1, DAY 15. CYCLE=5.5 WEEKS.TDD: 648 MG
     Route: 042
     Dates: start: 20100120
  2. CAPECITABINE [Suspect]
     Indication: RECTAL CANCER
     Dosage: TDD: 144000 MG,LAST DOSE PRIOR TO SAE: 17 FEBRUARY 2010. CYCLE 1, DAY 29. CYCLE=5.5 WEEKS
     Route: 048
     Dates: start: 20100120
  3. OXALIPLATIN [Suspect]
     Indication: RECTAL CANCER
     Dosage: TDD: 356 MG, LAST DOSE PRIOR TO SAE: 02 FEBRUARY 2010. CYCLE 1, DAY 15. CYCLE=5.5 WEEKS.
     Route: 042
     Dates: start: 20100120

REACTIONS (14)
  - ACIDOSIS [None]
  - ASPIRATION [None]
  - CARDIAC ARREST [None]
  - DIARRHOEA [None]
  - DISSEMINATED INTRAVASCULAR COAGULATION [None]
  - HAEMOGLOBIN [None]
  - HYPOKALAEMIA [None]
  - HYPONATRAEMIA [None]
  - HYPOTHERMIA [None]
  - ILEUS [None]
  - NAUSEA [None]
  - PLATELET COUNT [None]
  - SMALL INTESTINAL OBSTRUCTION [None]
  - VOMITING [None]
